FAERS Safety Report 8177874-4 (Version None)
Quarter: 2012Q1

REPORT INFORMATION
  Report Type: 
  Country: None (occurrence: None)
  Receive Date: 20120301
  Receipt Date: 20120221
  Transmission Date: 20120608
  Serious: Yes (Other)
  Sender: FDA-Public Use
  Company Number: DE-TEVA-324082GER

PATIENT
  Age: 29 Year
  Sex: Female
  Weight: 62 kg

DRUGS (4)
  1. NAUSEMA [Concomitant]
     Indication: VOMITING IN PREGNANCY
     Dosage: ON DEMAND
     Route: 048
  2. FOLSAURE [Concomitant]
     Indication: PROPHYLAXIS OF NEURAL TUBE DEFECT
     Dosage: ALSO PRECONCEPTIONAL, DOSAGE UNKNOWN
     Route: 048
     Dates: start: 20110218, end: 20110929
  3. VENLAFAXINE [Suspect]
     Indication: ANXIETY DISORDER
     Dosage: 187.5 MILLIGRAM; 187.5 [MG/D ]
     Route: 048
     Dates: start: 20110218, end: 20110929
  4. MCP-TROPFEN [Concomitant]
     Indication: VOMITING IN PREGNANCY
     Dosage: ON DEMAND
     Route: 048

REACTIONS (2)
  - PREMATURE SEPARATION OF PLACENTA [None]
  - STILLBIRTH [None]
